FAERS Safety Report 9197066 (Version 1)
Quarter: 2013Q1

REPORT INFORMATION
  Report Type: Spontaneous
  Country: FR (occurrence: FR)
  Receive Date: 20130328
  Receipt Date: 20130328
  Transmission Date: 20140127
  Serious: Yes (Death)
  Sender: FDA-Public Use
  Company Number: FR-ROCHE-1206952

PATIENT
  Age: 65 Year
  Sex: Female

DRUGS (8)
  1. MABTHERA [Suspect]
     Indication: NON-HODGKIN^S LYMPHOMA
     Route: 042
     Dates: end: 201211
  2. CYCLOPHOSPHAMIDE [Suspect]
     Indication: NON-HODGKIN^S LYMPHOMA
     Route: 065
     Dates: end: 201211
  3. VINCRISTINE [Suspect]
     Indication: NON-HODGKIN^S LYMPHOMA
     Route: 065
     Dates: end: 201211
  4. DOXORUBICINE [Suspect]
     Indication: NON-HODGKIN^S LYMPHOMA
     Route: 065
     Dates: end: 201211
  5. PREDNISOLONE [Suspect]
     Indication: NON-HODGKIN^S LYMPHOMA
     Route: 065
     Dates: end: 201211
  6. DOLIPRANE [Concomitant]
  7. SMECTA [Concomitant]
  8. VOGALENE [Concomitant]

REACTIONS (2)
  - Cardiomyopathy [Fatal]
  - Pulmonary oedema [Fatal]
